FAERS Safety Report 15977796 (Version 2)
Quarter: 2019Q4

REPORT INFORMATION
  Report Type: Spontaneous
  Country: FR (occurrence: FR)
  Receive Date: 20190218
  Receipt Date: 20191105
  Transmission Date: 20200122
  Serious: Yes (Hospitalization)
  Sender: FDA-Public Use
  Company Number: FR-ALSI-201900076

PATIENT
  Age: 18 Year
  Sex: Male

DRUGS (1)
  1. NITROUS OXIDE. [Suspect]
     Active Substance: NITROUS OXIDE
     Indication: SUBSTANCE ABUSE
     Route: 055

REACTIONS (2)
  - Subacute combined cord degeneration [Unknown]
  - Substance dependence [Unknown]
